FAERS Safety Report 6415956-5 (Version None)
Quarter: 2009Q4

REPORT INFORMATION
  Report Type: 
  Country: None (occurrence: None)
  Receive Date: 20091027
  Receipt Date: 20091020
  Transmission Date: 20100525
  Serious: Yes (Other)
  Sender: FDA-Public Use
  Company Number: B0597787A

PATIENT
  Sex: Male
  Weight: 62 kg

DRUGS (1)
  1. RELENZA [Suspect]
     Indication: INFLUENZA
     Dosage: 10MG TWICE PER DAY
     Route: 055
     Dates: start: 20090930, end: 20091004

REACTIONS (3)
  - AGITATION [None]
  - DELIRIUM [None]
  - NIGHTMARE [None]
